FAERS Safety Report 5022176-8 (Version None)
Quarter: 2006Q2

REPORT INFORMATION
  Report Type: 
  Country: None (occurrence: None)
  Receive Date: 20060428
  Receipt Date: 20060113
  Transmission Date: 20061013
  Serious: Yes (Death)
  Sender: FDA-Public Use
  Company Number: COT_0365_2006

PATIENT
  Age: 19 Year
  Sex: Female
  Weight: 43.9989 kg

DRUGS (15)
  1. VENTAVIS [Suspect]
     Indication: PULMONARY HYPERTENSION
     Dosage: 5 MCG 7XD IH
     Dates: start: 20051020
  2. MEDROL [Concomitant]
  3. SINEMET [Concomitant]
  4. VITAMIN D [Concomitant]
  5. PROTONIX [Concomitant]
  6. VICODIN [Concomitant]
  7. NIFEDIPINE [Concomitant]
  8. ALBUTEROL [Concomitant]
  9. AMBIEN [Concomitant]
  10. MULTI-VITAMIN [Concomitant]
  11. LORAZEPAM [Concomitant]
  12. LISINOPRIL [Concomitant]
  13. COUMADIN [Concomitant]
  14. DIGITEK [Concomitant]
  15. OXYGEN [Concomitant]

REACTIONS (1)
  - RIGHT VENTRICULAR FAILURE [None]
